FAERS Safety Report 19770006 (Version 1)
Quarter: 2021Q3

REPORT INFORMATION
  Report Type: Report from Study
  Country: FR (occurrence: FR)
  Receive Date: 20210901
  Receipt Date: 20210901
  Transmission Date: 20211014
  Serious: Yes (Hospitalization, Other)
  Sender: FDA-Public Use
  Company Number: NVSC2020FR335443

PATIENT
  Age: 67 Year
  Sex: Male

DRUGS (3)
  1. BLINDED NO TREATMENT RECEIVED [Suspect]
     Active Substance: INVESTIGATIONAL PRODUCT
     Indication: COVID-19
     Dosage: CODE NOT BROKEN
     Route: 055
     Dates: start: 20201007, end: 20201020
  2. PLACEBO [Suspect]
     Active Substance: UNSPECIFIED INGREDIENT
     Indication: COVID-19
     Dosage: CODE NOT BROKEN
     Route: 055
     Dates: start: 20201007, end: 20201020
  3. BLINDED NVF233 [Suspect]
     Active Substance: INTERFERON BETA-1B
     Indication: COVID-19
     Dosage: CODE NOT BROKEN
     Route: 055
     Dates: start: 20201007, end: 20201020

REACTIONS (5)
  - Pulmonary embolism [Recovered/Resolved with Sequelae]
  - Deep vein thrombosis [Recovering/Resolving]
  - COVID-19 pneumonia [Recovering/Resolving]
  - Pneumonia [Recovered/Resolved with Sequelae]
  - Acute respiratory distress syndrome [Recovering/Resolving]

NARRATIVE: CASE EVENT DATE: 20201017
